FAERS Safety Report 23436701 (Version 1)
Quarter: 2024Q1

REPORT INFORMATION
  Report Type: Spontaneous
  Country: DE (occurrence: DE)
  Receive Date: 20240124
  Receipt Date: 20240124
  Transmission Date: 20240410
  Serious: Yes (Hospitalization, Other)
  Sender: FDA-Public Use
  Company Number: DE-AMGEN-DEUSP2024008905

PATIENT
  Sex: Female

DRUGS (7)
  1. PANITUMUMAB [Suspect]
     Active Substance: PANITUMUMAB
     Indication: Rectal adenocarcinoma
     Dosage: UNK
     Route: 065
  2. LEUCOVORIN [Suspect]
     Active Substance: LEUCOVORIN\LEUCOVORIN CALCIUM
     Indication: Rectal adenocarcinoma
     Dosage: UNK
     Route: 065
  3. FLUOROURACIL [Suspect]
     Active Substance: FLUOROURACIL
     Indication: Rectal adenocarcinoma
     Dosage: UNK
     Route: 065
  4. IRINOTECAN [Suspect]
     Active Substance: IRINOTECAN
     Indication: Rectal adenocarcinoma
     Dosage: UNK
     Route: 065
  5. OXALIPLATIN [Suspect]
     Active Substance: OXALIPLATIN
     Indication: Rectal adenocarcinoma
     Dosage: UNK
     Route: 065
  6. CISPLATIN [Suspect]
     Active Substance: CISPLATIN
     Indication: Rectal adenocarcinoma
     Dosage: UNK
     Route: 065
  7. TRASTUZUMAB DERUXTECAN [Concomitant]
     Active Substance: TRASTUZUMAB DERUXTECAN
     Dosage: 6.4 MILLIGRAM/KILOGRAM, Q3WK
     Route: 042
     Dates: start: 2022

REACTIONS (7)
  - Metastases to central nervous system [Recovering/Resolving]
  - Paralysis [Recovering/Resolving]
  - Metastases to meninges [Recovering/Resolving]
  - Rectal adenocarcinoma [Recovering/Resolving]
  - Gene mutation [Unknown]
  - Epilepsy [Unknown]
  - Drug intolerance [Unknown]
